FAERS Safety Report 9450148 (Version 2)
Quarter: 2013Q3

REPORT INFORMATION
  Report Type: Spontaneous
  Country: US (occurrence: US)
  Receive Date: 20130809
  Receipt Date: 20130910
  Transmission Date: 20140515
  Serious: Yes (Other)
  Sender: FDA-Public Use
  Company Number: US-JNJFOC-20130800035

PATIENT
  Sex: Male
  Weight: 90.72 kg

DRUGS (15)
  1. INVEGA SUSTENNA [Suspect]
     Indication: PSYCHOTIC DISORDER
     Route: 030
  2. INVEGA SUSTENNA [Suspect]
     Indication: PSYCHOTIC DISORDER
     Route: 030
     Dates: start: 20130731
  3. INVEGA SUSTENNA [Suspect]
     Indication: PSYCHOTIC DISORDER
     Route: 030
     Dates: start: 2012, end: 2013
  4. ABILIFY [Suspect]
     Indication: PSYCHOTIC DISORDER
     Route: 065
     Dates: start: 2013, end: 2013
  5. AMLODIPINE [Concomitant]
     Route: 065
  6. BUPROPION [Concomitant]
     Route: 065
  7. CYCLOBENZAPRINE [Concomitant]
     Route: 065
  8. ATIVAN [Concomitant]
     Route: 065
  9. BISACODYL [Concomitant]
     Route: 065
  10. BROMIDE [Concomitant]
     Route: 031
  11. FISH OIL [Concomitant]
     Route: 065
  12. MULTIVITAMINS [Concomitant]
     Route: 065
  13. LISINOPRIL [Concomitant]
     Indication: PRODUCT USED FOR UNKNOWN INDICATION
     Route: 065
  14. LORAZEPAM [Concomitant]
     Indication: PRODUCT USED FOR UNKNOWN INDICATION
     Route: 065
  15. OXCARBAZEPINE [Concomitant]
     Indication: PRODUCT USED FOR UNKNOWN INDICATION
     Route: 065

REACTIONS (5)
  - Dependence [Recovering/Resolving]
  - Fall [Recovering/Resolving]
  - Injury [Recovering/Resolving]
  - Abnormal behaviour [Recovering/Resolving]
  - Pain [Recovering/Resolving]
